FAERS Safety Report 10067941 (Version 2)
Quarter: 2014Q2

REPORT INFORMATION
  Report Type: Spontaneous
  Country: PL (occurrence: PL)
  Receive Date: 20140409
  Receipt Date: 20140409
  Transmission Date: 20141212
  Serious: Yes (Life-Threatening, Hospitalization, Other)
  Sender: FDA-Public Use
  Company Number: PL-009507513-1403POL014114

PATIENT
  Age: 34 Year
  Sex: Female
  Weight: 63 kg

DRUGS (1)
  1. NUVARING [Suspect]
     Dosage: 1 DF, (0.120 MG + 0.015 MG)/24 H
     Route: 067
     Dates: start: 20140321, end: 20140324

REACTIONS (5)
  - Dyspnoea [Recovered/Resolved]
  - Palpitations [Recovered/Resolved]
  - Venous thrombosis [Recovered/Resolved]
  - Pulmonary embolism [Recovered/Resolved]
  - Pain in extremity [Not Recovered/Not Resolved]
